FAERS Safety Report 4741599-5 (Version None)
Quarter: 2005Q3

REPORT INFORMATION
  Report Type: 
  Country: None (occurrence: None)
  Receive Date: 20050808
  Receipt Date: 20050725
  Transmission Date: 20060218
  Serious: Yes (Other)
  Sender: FDA-Public Use
  Company Number: GBS050718014

PATIENT
  Sex: Female

DRUGS (4)
  1. DULOXETINE HYDROCHLORIDE [Suspect]
     Indication: DEPRESSION
     Dosage: 20 MG/2 DAY
     Dates: start: 20050606
  2. CILEST [Concomitant]
  3. ZOPICLONE [Concomitant]
  4. SERTRALINE HCL [Concomitant]

REACTIONS (2)
  - DRUG INTERACTION [None]
  - METRORRHAGIA [None]
